FAERS Safety Report 23970144 (Version 3)
Quarter: 2024Q3

REPORT INFORMATION
  Report Type: Spontaneous
  Country: RU (occurrence: RU)
  Receive Date: 20240613
  Receipt Date: 20240715
  Transmission Date: 20241016
  Serious: Yes (Death, Life-Threatening, Other)
  Sender: JOHNSON AND JOHNSON
  Company Number: RU-JNJFOC-20240622669

PATIENT
  Sex: Male
  Weight: 46 kg

DRUGS (12)
  1. SIRTURO [Suspect]
     Active Substance: BEDAQUILINE FUMARATE
     Indication: Pulmonary tuberculosis
     Dosage: 0.4 DAILY
     Route: 048
     Dates: start: 20240426
  2. SIRTURO [Suspect]
     Active Substance: BEDAQUILINE FUMARATE
     Dosage: 0.4 DAILY
     Route: 048
     Dates: start: 20240614
  3. SIRTURO [Suspect]
     Active Substance: BEDAQUILINE FUMARATE
     Dosage: 0.2 3T PER WEEK
     Route: 048
     Dates: start: 20240511, end: 20240603
  4. SIRTURO [Suspect]
     Active Substance: BEDAQUILINE FUMARATE
     Dosage: 0.2 3T PER WEEK
     Route: 048
     Dates: end: 20240704
  5. MOXIFLOXACIN [Suspect]
     Active Substance: MOXIFLOXACIN
     Indication: Pulmonary tuberculosis
     Dosage: 0.4 DAILY
     Route: 065
     Dates: start: 20240426, end: 20240603
  6. MOXIFLOXACIN [Suspect]
     Active Substance: MOXIFLOXACIN
     Dosage: 0.4 DAILY
     Route: 065
     Dates: start: 20240614, end: 20240704
  7. LINEZOLID [Suspect]
     Active Substance: LINEZOLID
     Indication: Pulmonary tuberculosis
     Dosage: 0.6 DAILY
     Route: 065
     Dates: start: 20240426, end: 20240603
  8. LINEZOLID [Suspect]
     Active Substance: LINEZOLID
     Route: 065
     Dates: start: 20240614, end: 20240704
  9. PRETOMANID [Suspect]
     Active Substance: PRETOMANID
     Indication: Pulmonary tuberculosis
     Dosage: 0.2 DAILY
     Route: 065
     Dates: start: 20240426, end: 20240603
  10. PRETOMANID [Suspect]
     Active Substance: PRETOMANID
     Dosage: 0.2 DAILY
     Route: 065
     Dates: start: 20240614, end: 20240704
  11. PREDNISOLONE [Concomitant]
     Active Substance: PREDNISOLONE
     Indication: Tuberculosis
     Dates: start: 20240517
  12. BENFOTIAMINE\CYANOCOBALAMIN [Concomitant]
     Active Substance: BENFOTIAMINE\CYANOCOBALAMIN
     Dates: start: 20240427

REACTIONS (6)
  - Pulmonary tuberculosis [Fatal]
  - Anaemia [Recovered/Resolved]
  - Electrocardiogram QT prolonged [Recovered/Resolved]
  - Nephropathy toxic [Not Recovered/Not Resolved]
  - Thrombocytopenia [Unknown]
  - Hypokalaemia [Recovered/Resolved]

NARRATIVE: CASE EVENT DATE: 20240513
